FAERS Safety Report 9544063 (Version 2)
Quarter: 2013Q4

REPORT INFORMATION
  Report Type: Spontaneous
  Country: US (occurrence: US)
  Receive Date: 20130923
  Receipt Date: 20131118
  Transmission Date: 20140711
  Serious: No
  Sender: FDA-Public Use
  Company Number: US-B.I. PHARMACEUTICALS,INC./RIDGEFIELD-2013-BI-29671BP

PATIENT
  Age: 65 Year
  Sex: Female
  Weight: 102 kg

DRUGS (5)
  1. ATROVENT INHALATION SOLUTION [Suspect]
     Indication: BRONCHITIS CHRONIC
     Dosage: 136 MCG
     Route: 055
     Dates: start: 201307
  2. ALBUTOL [Suspect]
  3. LISINOPRIL [Concomitant]
     Indication: HYPERTENSION
     Dosage: 10 MG
     Route: 048
  4. METFORMIN [Concomitant]
     Indication: DIABETES MELLITUS
     Dosage: 1000 MG
     Route: 048
  5. COMBIVENT [Concomitant]

REACTIONS (3)
  - Dyspnoea [Not Recovered/Not Resolved]
  - Wheezing [Not Recovered/Not Resolved]
  - Dyspnoea [Recovered/Resolved]
